FAERS Safety Report 8251277-6 (Version None)
Quarter: 2012Q1

REPORT INFORMATION
  Report Type: 
  Country: None (occurrence: None)
  Receive Date: 20120328
  Receipt Date: 20120314
  Transmission Date: 20120608
  Serious: Yes (Hospitalization)
  Sender: FDA-Public Use
  Company Number: 024035

PATIENT
  Age: 87 Year
  Sex: Male
  Weight: 46.8 kg

DRUGS (17)
  1. LEVOTHYROXINE SODIUM [Concomitant]
  2. METHYCOBAL (MECOBALAMIN) [Concomitant]
  3. SELBEX (TEPRENONE) [Concomitant]
  4. DEPAS (ETIZOLAM) [Concomitant]
  5. GLIMICRON (GLICLAZIDE) [Concomitant]
  6. PRONON (PROPAFENONE HYDROCHLORIDE) [Concomitant]
  7. GLYSENNID [Concomitant]
  8. NAUZELIN (DOMPERIDONE) [Concomitant]
  9. PEGAPTANIB SODIUM (PEGAPTANIB SODIUM) UNKNOWN [Suspect]
     Indication: DIABETIC RETINAL OEDEMA
     Dosage: 0.3 MG,
     Dates: start: 20111012
  10. SYMMETREL [Concomitant]
  11. FAMOTIDINE [Concomitant]
  12. IMIDAPRIL HYDROCHLORIDE (IMIDAPRIL HYDROCHLORIDE) [Concomitant]
  13. BIOFERMIN (BACILLUS SUBTILIS, LACTOBACILLUS ACIDOPHILUS, STRETOCOCCUS [Concomitant]
  14. FERROUS CITRATE [Concomitant]
  15. PLAVIX [Concomitant]
  16. VITANEURIN (THIAMINE HYDROCHLORIDE) [Concomitant]
  17. IMIDAFENACIN (IMIDAFENACIN) [Concomitant]

REACTIONS (2)
  - VIRAL MYOSITIS [None]
  - CYSTITIS [None]
